FAERS Safety Report 4582885-1 (Version None)
Quarter: 2005Q1

REPORT INFORMATION
  Report Type: 
  Country: None (occurrence: None)
  Receive Date: 20050127
  Receipt Date: 20040914
  Transmission Date: 20050727
  Serious: No
  Sender: FDA-Public Use
  Company Number: USA040978130

PATIENT
  Age: 58 Year
  Sex: Female
  Weight: 82 kg

DRUGS (5)
  1. STRATTERA [Suspect]
     Dosage: 36 MG
     Dates: start: 20040913
  2. ANTIBIOTIC [Concomitant]
  3. NASAL SPRAY (OXYMETAZOLINE HYDROCHLORIDE) [Concomitant]
  4. ZYRTEC [Concomitant]
  5. CELEBREX [Concomitant]

REACTIONS (3)
  - FEELING COLD [None]
  - HYPERHIDROSIS [None]
  - PSYCHOMOTOR HYPERACTIVITY [None]
